FAERS Safety Report 18956712 (Version 2)
Quarter: 2021Q2

REPORT INFORMATION
  Report Type: Report from Study
  Country: None (occurrence: US)
  Receive Date: 20210301
  Receipt Date: 20210510
  Transmission Date: 20210717
  Serious: Yes (Other)
  Sender: FDA-Public Use
  Company Number: US-ABBVIE-21K-163-3790060-00

PATIENT
  Sex: Male
  Weight: 84.9 kg

DRUGS (1)
  1. HUMIRA [Suspect]
     Active Substance: ADALIMUMAB
     Indication: CROHN^S DISEASE
     Dosage: CITRATE FREE
     Route: 058
     Dates: end: 20210315

REACTIONS (6)
  - Large intestine polyp [Unknown]
  - Procedural haemorrhage [Not Recovered/Not Resolved]
  - Prostate cancer [Unknown]
  - Radiation proctitis [Unknown]
  - White blood cell count increased [Unknown]
  - Prostatitis [Unknown]

NARRATIVE: CASE EVENT DATE: 2009
